FAERS Safety Report 7099578-1 (Version None)
Quarter: 2010Q4

REPORT INFORMATION
  Report Type: 
  Country: None (occurrence: None)
  Receive Date: 20101112
  Receipt Date: 20101103
  Transmission Date: 20110411
  Serious: Yes (Other)
  Sender: FDA-Public Use
  Company Number: US-JNJFOC-20101101661

PATIENT
  Sex: Female
  Weight: 51.71 kg

DRUGS (3)
  1. STELARA [Suspect]
     Indication: PSORIASIS
     Route: 058
  2. STELARA [Suspect]
     Indication: ACUTE FEBRILE NEUTROPHILIC DERMATOSIS
     Route: 058
  3. STELARA [Suspect]
     Route: 058

REACTIONS (5)
  - CARDIAC DISORDER [None]
  - DRUG INEFFECTIVE [None]
  - HYPERHIDROSIS [None]
  - PSORIASIS [None]
  - SYNCOPE [None]
